FAERS Safety Report 8061689-1 (Version None)
Quarter: 2012Q1

REPORT INFORMATION
  Report Type: 
  Country: None (occurrence: None)
  Receive Date: 20120123
  Receipt Date: 20120117
  Transmission Date: 20120608
  Serious: Yes (Hospitalization, Other)
  Sender: FDA-Public Use
  Company Number: US-BIOGENIDEC-2011BI048663

PATIENT
  Age: 45 Year
  Sex: Male
  Weight: 92 kg

DRUGS (9)
  1. VITAMIN D [Concomitant]
     Indication: VITAMIN D DEFICIENCY
     Route: 048
     Dates: start: 20100301
  2. TYSABRI [Suspect]
     Indication: CROHN'S DISEASE
     Route: 042
     Dates: start: 20100810, end: 20110809
  3. ADVAIR DISKUS 100/50 [Concomitant]
     Indication: ASTHMA
     Route: 055
     Dates: start: 20000101
  4. ADVAIR DISKUS 100/50 [Concomitant]
     Route: 055
  5. ASPIRIN [Concomitant]
     Route: 048
     Dates: start: 20110101
  6. FERROUS SULFATE TAB [Concomitant]
     Indication: IRON DEFICIENCY ANAEMIA
     Route: 048
  7. SIMVASTATIN [Concomitant]
     Indication: BLOOD CHOLESTEROL INCREASED
     Route: 048
     Dates: start: 20110101
  8. ACTOS [Concomitant]
     Indication: DIABETES MELLITUS
     Route: 048
     Dates: start: 20060101
  9. WELLBUTRIN [Concomitant]
     Indication: ANXIETY
     Route: 048
     Dates: start: 20110101

REACTIONS (1)
  - HERPES ZOSTER [None]
